FAERS Safety Report 8554105-4 (Version None)
Quarter: 2012Q3

REPORT INFORMATION
  Report Type: 
  Country: None (occurrence: None)
  Receive Date: 20120731
  Receipt Date: 20120725
  Transmission Date: 20120928
  Serious: Yes (Other)
  Sender: FDA-Public Use
  Company Number: PHEH2012US003612

PATIENT
  Sex: Female

DRUGS (4)
  1. GILENYA [Suspect]
     Indication: MULTIPLE SCLEROSIS
     Dosage: 0.5 MG, DAILY
     Route: 048
     Dates: start: 20111011, end: 20120103
  2. SKELAXIN [Concomitant]
     Indication: MUSCLE SPASTICITY
     Dosage: 800 MG, QID
  3. GABAPENTIN [Concomitant]
     Indication: NEURALGIA
     Dosage: 300 MG, QID
  4. PROVIGIL [Concomitant]
     Indication: FATIGUE
     Dosage: 400 MG, QAM

REACTIONS (5)
  - MACULAR OEDEMA [None]
  - EYE DISORDER [None]
  - DIPLOPIA [None]
  - BLINDNESS UNILATERAL [None]
  - VISION BLURRED [None]
